FAERS Safety Report 11510759 (Version 3)
Quarter: 2015Q4

REPORT INFORMATION
  Report Type: Spontaneous
  Country: BR (occurrence: BR)
  Receive Date: 20150915
  Receipt Date: 20151119
  Transmission Date: 20160304
  Serious: Yes (Other)
  Sender: FDA-Public Use
  Company Number: BR-JNJFOC-20150905856

PATIENT
  Sex: Female
  Weight: 65.7 kg

DRUGS (5)
  1. REMICADE [Suspect]
     Active Substance: INFLIXIMAB
     Indication: RHEUMATOID ARTHRITIS
     Dosage: 3 VIALS PER INFUSION
     Route: 042
  2. AMATO(TOPIRAMATE) [Concomitant]
     Indication: DEPRESSION
     Route: 065
  3. REMICADE [Suspect]
     Active Substance: INFLIXIMAB
     Indication: RHEUMATOID ARTHRITIS
     Dosage: 3 VIALS PER INFUSION
     Route: 042
     Dates: start: 20150910
  4. AMATO(TOPIRAMATE) [Concomitant]
     Indication: PAIN
     Route: 065
  5. METHOTREXATE [Concomitant]
     Active Substance: METHOTREXATE
     Indication: RHEUMATOID ARTHRITIS
     Route: 065

REACTIONS (8)
  - Emphysema [Unknown]
  - Therapeutic response decreased [Not Recovered/Not Resolved]
  - Weight increased [Unknown]
  - Cardiac disorder [Unknown]
  - Hypothyroidism [Unknown]
  - Arthropathy [Unknown]
  - Drug dose omission [Unknown]
  - Labyrinthitis [Unknown]

NARRATIVE: CASE EVENT DATE: 2015
